FAERS Safety Report 9857043 (Version 1)
Quarter: 2014Q1

REPORT INFORMATION
  Report Type: Spontaneous
  Country: LT (occurrence: LT)
  Receive Date: 20140130
  Receipt Date: 20140130
  Transmission Date: 20141002
  Serious: Yes (Life-Threatening, Hospitalization)
  Sender: FDA-Public Use
  Company Number: LT-PFIZER INC-2014028149

PATIENT
  Age: 33 Year
  Sex: Male
  Weight: 80 kg

DRUGS (2)
  1. XANAX [Suspect]
     Indication: SUICIDE ATTEMPT
     Dosage: 5 MG, SINGLE (10 TABLETS OF 0.5 MG)
     Route: 048
     Dates: start: 20131017, end: 20131017
  2. PARACETAMOL [Suspect]
     Indication: SUICIDE ATTEMPT
     Dosage: 2500 MG, SINGLE (5 TABLETS OF 500 MG)
     Route: 048
     Dates: start: 20131017, end: 20131017

REACTIONS (2)
  - Intentional overdose [Recovered/Resolved]
  - Suicide attempt [Recovered/Resolved]
